FAERS Safety Report 13227973 (Version 13)
Quarter: 2018Q4

REPORT INFORMATION
  Report Type: Report from Study
  Country: US (occurrence: US)
  Receive Date: 20170213
  Receipt Date: 20181218
  Transmission Date: 20190204
  Serious: Yes (Death, Hospitalization, Other)
  Sender: FDA-Public Use
  Company Number: US-ACTELION-A-NJ2017-149583

PATIENT
  Age: 91 Year
  Sex: Female
  Weight: 65.76 kg

DRUGS (13)
  1. LEVOTHYROXINE. [Concomitant]
     Active Substance: LEVOTHYROXINE
     Dosage: 88 MG, QD
     Dates: start: 1991
  2. ADEMPAS [Concomitant]
     Active Substance: RIOCIGUAT
     Dosage: 1.5 MG, TID
  3. ADEMPAS [Concomitant]
     Active Substance: RIOCIGUAT
     Dosage: 0.5 MG, TID
  4. POTASSIUM [Concomitant]
     Active Substance: POTASSIUM
     Dosage: 10 MEQ, UNK
     Dates: start: 201702
  5. VITAMIN D [Concomitant]
     Active Substance: CHOLECALCIFEROL
     Dosage: 2000 IU, UNK
  6. OPSUMIT [Suspect]
     Active Substance: MACITENTAN
     Dosage: UNK
     Route: 048
  7. ADEMPAS [Concomitant]
     Active Substance: RIOCIGUAT
     Dosage: 1.5 MG, TID
     Dates: start: 20170223
  8. LOSARTAN. [Concomitant]
     Active Substance: LOSARTAN
     Dosage: 25 MG, QD
     Dates: start: 2016
  9. WARFARIN [Concomitant]
     Active Substance: WARFARIN
     Dosage: 2.5 MG OR 1 MG (VARIES DAILY)
  10. NABUMETONE. [Concomitant]
     Active Substance: NABUMETONE
     Dosage: 500 MG, BID
  11. ATORVASTATIN [Concomitant]
     Active Substance: ATORVASTATIN
     Dosage: 20 MG, UNK
  12. OPSUMIT [Suspect]
     Active Substance: MACITENTAN
     Indication: PULMONARY ARTERIAL HYPERTENSION
     Dosage: 10 MG, QD
     Route: 048
     Dates: start: 201701
  13. METOPROLOL. [Concomitant]
     Active Substance: METOPROLOL
     Dosage: 12.5 MG, QD

REACTIONS (22)
  - Feeling abnormal [Unknown]
  - Hypoacusis [Unknown]
  - Fluid retention [Unknown]
  - Pneumonia [Unknown]
  - Hypotension [Unknown]
  - Cardiac failure congestive [Unknown]
  - Rhinorrhoea [Unknown]
  - Glaucoma [Unknown]
  - Pulmonary arterial hypertension [Not Recovered/Not Resolved]
  - Fatigue [Unknown]
  - Malaise [Unknown]
  - Abdominal distension [Unknown]
  - Walking disability [Not Recovered/Not Resolved]
  - Dyspnoea exertional [Unknown]
  - Death [Fatal]
  - Renal disorder [Unknown]
  - Dizziness [Unknown]
  - Dyspnoea [Unknown]
  - Chronic obstructive pulmonary disease [Unknown]
  - Weight increased [Unknown]
  - Seasonal allergy [Unknown]
  - Headache [Unknown]

NARRATIVE: CASE EVENT DATE: 20170201
